FAERS Safety Report 8966885 (Version 3)
Quarter: 2013Q1

REPORT INFORMATION
  Report Type: Spontaneous
  Country: US (occurrence: US)
  Receive Date: 20121214
  Receipt Date: 20130124
  Transmission Date: 20140127
  Serious: Yes (Hospitalization)
  Sender: FDA-Public Use
  Company Number: US-PFIZER INC-2012317115

PATIENT
  Age: 60 Year
  Sex: Male
  Weight: 83.9 kg

DRUGS (4)
  1. LIPITOR [Suspect]
     Indication: BLOOD CHOLESTEROL ABNORMAL
     Dosage: 10 MG, DAILY
  2. NEURONTIN [Suspect]
     Indication: POOR PERIPHERAL CIRCULATION
     Dosage: 400 MG, 3X/DAY
  3. ACCURETIC [Suspect]
     Indication: HYPERTENSION
     Dosage: 10 MG/12.5 MG, DAILY
     Dates: start: 2002
  4. PROTONIX [Suspect]
     Indication: GASTROOESOPHAGEAL REFLUX DISEASE
     Dosage: 40 MG, DAILY

REACTIONS (1)
  - Prostate cancer [Unknown]
